FAERS Safety Report 13664381 (Version 1)
Quarter: 2017Q2

REPORT INFORMATION
  Report Type: Spontaneous
  Country: US (occurrence: US)
  Receive Date: 20170618
  Receipt Date: 20170618
  Transmission Date: 20170830
  Serious: Yes (Other)
  Sender: FDA-Public Use
  Company Number: None

PATIENT
  Age: 6 Day
  Sex: Female
  Weight: .43 kg

DRUGS (1)
  1. NEUT SODIUM BICARBONATE [Suspect]
     Active Substance: SODIUM BICARBONATE
     Indication: METABOLIC ACIDOSIS
     Dosage: ?          OTHER FREQUENCY:ONCE;?
     Route: 042
     Dates: start: 20170615, end: 20170616

REACTIONS (2)
  - Disease complication [None]
  - Manufacturing materials contamination [None]

NARRATIVE: CASE EVENT DATE: 20170615
